FAERS Safety Report 13507248 (Version 1)
Quarter: 2017Q2

REPORT INFORMATION
  Report Type: Spontaneous
  Country: US (occurrence: US)
  Receive Date: 20170503
  Receipt Date: 20170503
  Transmission Date: 20170830
  Serious: No
  Sender: FDA-Public Use
  Company Number: US-TEVA-733261ACC

PATIENT
  Sex: Female
  Weight: 63.56 kg

DRUGS (1)
  1. MICON 2% [Suspect]
     Active Substance: MICONAZOLE
     Indication: FUNGAL INFECTION

REACTIONS (1)
  - Burning sensation [Unknown]
